FAERS Safety Report 14153578 (Version 1)
Quarter: 2017Q4

REPORT INFORMATION
  Report Type: Spontaneous
  Country: US (occurrence: US)
  Receive Date: 20171102
  Receipt Date: 20171102
  Transmission Date: 20180321
  Serious: No
  Sender: FDA-Public Use
  Company Number: US-SA-2017SA148584

PATIENT
  Age: 78 Year
  Sex: Female

DRUGS (2)
  1. PRALUENT [Suspect]
     Active Substance: ALIROCUMAB
     Indication: BLOOD CHOLESTEROL
     Route: 058
     Dates: start: 201603, end: 20170703
  2. ALIROCUMAB PREFILLED PEN [Suspect]
     Active Substance: ALIROCUMAB
     Indication: BLOOD CHOLESTEROL
     Dates: start: 201603, end: 20170703

REACTIONS (17)
  - Dyspnoea [Unknown]
  - Ear infection [Unknown]
  - Rash [Recovering/Resolving]
  - Intraocular pressure increased [Unknown]
  - Hypohidrosis [Unknown]
  - Dermatitis [Recovering/Resolving]
  - Pain in jaw [Unknown]
  - Seborrhoea [Recovering/Resolving]
  - Pruritus [Recovering/Resolving]
  - Eye swelling [Recovering/Resolving]
  - Eye pain [Recovering/Resolving]
  - Rash generalised [Recovering/Resolving]
  - Scab [Recovering/Resolving]
  - Secretion discharge [Recovering/Resolving]
  - Erythema [Recovering/Resolving]
  - Insomnia [Unknown]
  - Swelling [Recovering/Resolving]

NARRATIVE: CASE EVENT DATE: 2017
